FAERS Safety Report 9049714 (Version 2)
Quarter: 2013Q1

REPORT INFORMATION
  Report Type: Spontaneous
  Country: CA (occurrence: CA)
  Receive Date: 20130205
  Receipt Date: 20130305
  Transmission Date: 20140127
  Serious: Yes (Hospitalization, Other)
  Sender: FDA-Public Use
  Company Number: CA-AMGEN-CANSP2013006501

PATIENT
  Age: 44 Year
  Sex: Male
  Weight: 150 kg

DRUGS (2)
  1. ENBREL [Suspect]
     Indication: RHEUMATOID ARTHRITIS
     Dosage: 50 MG, QWK
     Route: 058
     Dates: start: 20101213, end: 20120810
  2. METHOTREXATE [Suspect]
     Indication: RHEUMATOID ARTHRITIS
     Dosage: 15 MG, QWK
     Route: 058
     Dates: start: 20100210, end: 20100810

REACTIONS (3)
  - Pleural effusion [Recovered/Resolved]
  - Lobar pneumonia [Recovered/Resolved]
  - Empyema [Recovered/Resolved]
